FAERS Safety Report 6643958-2 (Version None)
Quarter: 2010Q1

REPORT INFORMATION
  Report Type: 
  Country: None (occurrence: None)
  Receive Date: 20100322
  Receipt Date: 20100316
  Transmission Date: 20100710
  Serious: Yes (Hospitalization)
  Sender: FDA-Public Use
  Company Number: FR-BRISTOL-MYERS SQUIBB COMPANY-15024151

PATIENT
  Age: 71 Year
  Sex: Female

DRUGS (10)
  1. FUNGIZONE [Suspect]
     Dosage: 10% ORAL SUSPENSION, A TABLESPOON 3 TIMES A DAY ORALLY.
     Route: 048
     Dates: start: 20091101, end: 20091108
  2. SINEMET [Suspect]
     Dosage: 1 DF= 100 MG/10 MG, 1/2 SCORED TABLET.
  3. SEGLOR [Suspect]
     Dosage: CAPSULE
     Route: 048
  4. PREDNISOLONE [Suspect]
     Route: 048
     Dates: start: 20091101, end: 20091108
  5. LYRICA [Suspect]
     Dosage: 1 CAPSULE
     Route: 048
     Dates: start: 20091101, end: 20091108
  6. STABLON [Suspect]
     Dosage: DF=1 COATED TABLET
     Route: 048
     Dates: end: 20091108
  7. STRESAM [Suspect]
     Dosage: DF=CAPS.1 CAPSULE IN THE MORNING, AT NOON, IN THE EVENING AND 2 CAPSULES AT BEDTIME
     Route: 048
     Dates: end: 20091108
  8. EUTHYRAL [Suspect]
     Dosage: 1 DF = 1 SCORED TABLET DAILY IN THE MORNING
  9. PIRACETAM [Suspect]
     Dosage: 3 INTAKES DAILY
  10. TRIFLUCAN [Suspect]

REACTIONS (1)
  - TONGUE NECROSIS [None]
